FAERS Safety Report 9844940 (Version 1)
Quarter: 2014Q1

REPORT INFORMATION
  Report Type: Spontaneous
  Country: US (occurrence: US)
  Receive Date: 20140127
  Receipt Date: 20140127
  Transmission Date: 20141002
  Serious: No
  Sender: FDA-Public Use
  Company Number: US-BAYER-2014-013356

PATIENT
  Age: 87 Year
  Sex: Female
  Weight: 67 kg

DRUGS (3)
  1. ALEVE TABLET [Suspect]
     Indication: PAIN
     Dosage: 1 DF, OM
     Route: 048
  2. ALEVE TABLET [Suspect]
     Indication: PAIN PROPHYLAXIS
  3. BENICAR [Concomitant]
     Dosage: UNK

REACTIONS (2)
  - Incorrect drug administration duration [None]
  - Off label use [None]
